FAERS Safety Report 25329673 (Version 2)
Quarter: 2025Q3

REPORT INFORMATION
  Report Type: Report from Study
  Country: KR (occurrence: KR)
  Receive Date: 20250519
  Receipt Date: 20250904
  Transmission Date: 20251020
  Serious: Yes (Death, Hospitalization)
  Sender: KARYOPHARM THERAPEUTICS
  Company Number: KR-ANTENGENE-20250503151

PATIENT
  Age: 53 Year
  Sex: Male
  Weight: 79.8 kg

DRUGS (6)
  1. SELINEXOR [Suspect]
     Active Substance: SELINEXOR
     Indication: Plasma cell myeloma
     Route: 048
     Dates: start: 20240705, end: 20240712
  2. SELINEXOR [Suspect]
     Active Substance: SELINEXOR
     Route: 048
     Dates: start: 20240719, end: 20240729
  3. OXYCODONE HYDROCHLORIDE [Concomitant]
     Active Substance: OXYCODONE HYDROCHLORIDE
     Indication: Pain
  4. NALOXONE HYDROCHLORIDE\OXYCODONE HYDROCHLORIDE [Concomitant]
     Active Substance: NALOXONE HYDROCHLORIDE\OXYCODONE HYDROCHLORIDE
     Indication: Pain
  5. DIOVAN [Concomitant]
     Active Substance: VALSARTAN
     Indication: Hypertension
  6. DEXAMETHASONE [Concomitant]
     Active Substance: DEXAMETHASONE
     Indication: Plasma cell myeloma

REACTIONS (2)
  - Plasma cell myeloma [Fatal]
  - Back pain [Recovered/Resolved]

NARRATIVE: CASE EVENT DATE: 20240712
